FAERS Safety Report 7105085-X (Version None)
Quarter: 2010Q4

REPORT INFORMATION
  Report Type: 
  Country: None (occurrence: None)
  Receive Date: 20101116
  Receipt Date: 20101112
  Transmission Date: 20110411
  Serious: Yes (Death)
  Sender: FDA-Public Use
  Company Number: BE-ASTRAZENECA-2010SE53566

PATIENT
  Age: 33 Year
  Sex: Female
  Weight: 60 kg

DRUGS (6)
  1. PROPOFOL [Suspect]
     Indication: SEDATIVE THERAPY
     Dosage: UP TO 200 MG/H
     Route: 042
  2. COLCHICINE [Suspect]
     Dosage: 20 MG
     Route: 048
  3. ATORVASTATIN [Suspect]
     Dosage: 100 MG
     Route: 048
  4. IBUPROFEN [Concomitant]
     Dosage: 8 G
     Route: 048
  5. DICLOFENAC SODIUM [Concomitant]
     Dosage: 1 G
     Route: 048
  6. FUROSEMIDE [Concomitant]
     Dosage: 400 MG
     Route: 048

REACTIONS (27)
  - ACUTE LUNG INJURY [None]
  - BLOOD BILIRUBIN INCREASED [None]
  - BRAIN OEDEMA [None]
  - CARDIAC ARREST [None]
  - CONTINUOUS HAEMODIAFILTRATION [None]
  - CONVULSION [None]
  - DIARRHOEA [None]
  - DRUG INTERACTION [None]
  - DRUG TOXICITY [None]
  - ENTEROCOLITIS [None]
  - ESCHERICHIA TEST POSITIVE [None]
  - HAEMORRHAGE [None]
  - HEPATIC FUNCTION ABNORMAL [None]
  - HYPERAMMONAEMIC ENCEPHALOPATHY [None]
  - HYPERLIPIDAEMIA [None]
  - HYPERTRIGLYCERIDAEMIA [None]
  - HYPOTENSION [None]
  - HYPOXIA [None]
  - ILEUS [None]
  - PANCYTOPENIA [None]
  - PULMONARY ALVEOLAR HAEMORRHAGE [None]
  - RENAL FAILURE ACUTE [None]
  - RHABDOMYOLYSIS [None]
  - SELF-MEDICATION [None]
  - SHOCK HAEMORRHAGIC [None]
  - SMALL INTESTINAL HAEMORRHAGE [None]
  - UNRESPONSIVE TO STIMULI [None]
